FAERS Safety Report 20668257 (Version 4)
Quarter: 2022Q2

REPORT INFORMATION
  Report Type: Spontaneous
  Country: GB (occurrence: GB)
  Receive Date: 20220404
  Receipt Date: 20220502
  Transmission Date: 20220720
  Serious: Yes (Hospitalization, Other)
  Sender: FDA-Public Use
  Company Number: GB-MYLANLABS-2022M1024046

PATIENT
  Age: 41 Year
  Sex: Male

DRUGS (1)
  1. CLOZARIL [Suspect]
     Active Substance: CLOZAPINE
     Indication: Schizophrenia
     Dosage: UNK
     Route: 048
     Dates: start: 20100726, end: 20220330

REACTIONS (6)
  - Subcutaneous abscess [Unknown]
  - Hospitalisation [Unknown]
  - Thrombocytosis [Unknown]
  - Differential white blood cell count abnormal [Recovering/Resolving]
  - Neutrophilia [Not Recovered/Not Resolved]
  - Leukocytosis [Recovering/Resolving]

NARRATIVE: CASE EVENT DATE: 20220329
